FAERS Safety Report 7416956-9 (Version None)
Quarter: 2011Q2

REPORT INFORMATION
  Report Type: 
  Country: None (occurrence: None)
  Receive Date: 20110408
  Receipt Date: 20110331
  Transmission Date: 20111010
  Serious: Yes (Hospitalization, Disabling)
  Sender: FDA-Public Use
  Company Number: WAES 0907USA04899

PATIENT
  Age: 55 Year
  Sex: Male

DRUGS (10)
  1. ISENTRESS [Suspect]
     Indication: HIV INFECTION
     Dosage: 800 MG DAILY, PO
     Route: 048
     Dates: start: 20080805
  2. INTELENCE [Suspect]
     Indication: HIV INFECTION
     Dosage: 200 MG BID, PO
     Route: 048
     Dates: start: 20090211
  3. KALETRA [Suspect]
     Indication: HIV INFECTION
     Dosage: 4 TAB DAILY, PO
     Route: 048
     Dates: start: 20070704, end: 20080108
  4. PREZISTA [Suspect]
     Indication: HIV INFECTION
     Dosage: 1200 MG, DAILY, PO
     Route: 048
     Dates: start: 20080109, end: 20080501
  5. ZERIT [Suspect]
     Indication: HIV INFECTION
     Dosage: 80 MG DAILY, PO
     Route: 048
     Dates: start: 20030916, end: 20060228
  6. ZERIT [Suspect]
     Indication: HIV INFECTION
     Dosage: 80 MG DAILY, PO
     Route: 048
     Dates: start: 20081216, end: 20090210
  7. TRUVADA [Suspect]
     Indication: HIV INFECTION
     Dosage: 1 TAB DAILY, PO;
     Route: 048
     Dates: start: 20080805, end: 20081215
  8. TRUVADA [Suspect]
     Indication: HIV INFECTION
     Dosage: 1 TAB DAILY, PO;
     Route: 048
     Dates: start: 20070704, end: 20080501
  9. EPIVIR [Suspect]
     Indication: HIV INFECTION
     Dosage: 150 MG, BID, PO
     Route: 048
     Dates: start: 20081216
  10. EPIVIR [Suspect]
     Indication: HIV INFECTION
     Dosage: 150 MG, BID, PO
     Route: 048
     Dates: start: 20030916, end: 20060228

REACTIONS (2)
  - DIABETES MELLITUS [None]
  - HYPERTRIGLYCERIDAEMIA [None]
